FAERS Safety Report 8469625-0 (Version None)
Quarter: 2012Q2

REPORT INFORMATION
  Report Type: 
  Country: None (occurrence: None)
  Receive Date: 20120626
  Receipt Date: 20120521
  Transmission Date: 20120825
  Serious: No
  Sender: FDA-Public Use
  Company Number: US-TEVA-339642USA

PATIENT
  Age: 64 Year
  Sex: Male
  Weight: 68.1 kg

DRUGS (3)
  1. MONTELUKAST [Concomitant]
     Indication: HYPERSENSITIVITY
  2. QNASL [Suspect]
     Indication: RHINITIS ALLERGIC
     Route: 045
     Dates: start: 20120430
  3. NARINE                             /01202601/ [Concomitant]
     Indication: HYPERSENSITIVITY

REACTIONS (1)
  - NASAL DISCOMFORT [None]
